FAERS Safety Report 20369195 (Version 1)
Quarter: 2022Q1

REPORT INFORMATION
  Report Type: Spontaneous
  Country: US (occurrence: None)
  Receive Date: 20220121
  Receipt Date: 20220121
  Transmission Date: 20220423
  Serious: Yes (Other)
  Sender: FDA-Public Use
  Company Number: None

PATIENT
  Age: 45 Year
  Sex: Female
  Weight: 78.75 kg

DRUGS (6)
  1. SOTROVIMAB [Suspect]
     Active Substance: SOTROVIMAB
     Indication: COVID-19
     Dosage: OTHER QUANTITY : 1 BAG?;?
     Route: 042
     Dates: start: 20220121, end: 20220121
  2. AMOXICILLIN [Concomitant]
     Active Substance: AMOXICILLIN
  3. BUPROPION [Concomitant]
     Active Substance: BUPROPION
  4. VITAMIN D NOS [Concomitant]
     Active Substance: VITAMIN D NOS
  5. VITAMIN C [Concomitant]
     Active Substance: ASCORBIC ACID
  6. ZINC [Concomitant]
     Active Substance: ZINC

REACTIONS (3)
  - Urticaria [None]
  - Burning sensation [None]
  - Infusion related reaction [None]

NARRATIVE: CASE EVENT DATE: 20220121
